FAERS Safety Report 7994422 (Version 2)
Quarter: 2013Q3

REPORT INFORMATION
  Report Type: Spontaneous
  Country: US (occurrence: US)
  Receive Date: 20110616
  Receipt Date: 20130808
  Transmission Date: 20140515
  Serious: Yes (Hospitalization)
  Sender: FDA-Public Use
  Company Number: US-B.I. PHARMACEUTICALS,INC./RIDGEFIELD-2011-BP-15306BP

PATIENT
  Sex: Female

DRUGS (2)
  1. PRADAXA [Suspect]
     Route: 048
  2. MULTAQ [Concomitant]
     Indication: ARRHYTHMIA

REACTIONS (1)
  - Rectal haemorrhage [Unknown]
